FAERS Safety Report 15132233 (Version 3)
Quarter: 2018Q3

REPORT INFORMATION
  Report Type: Report from Study
  Country: BE (occurrence: BE)
  Receive Date: 20180711
  Receipt Date: 20180723
  Transmission Date: 20181010
  Serious: Yes (Other)
  Sender: FDA-Public Use
  Company Number: BE-TAKEDA-2018TUS018159

PATIENT
  Sex: Female
  Weight: 84.5 kg

DRUGS (1)
  1. VEDOLIZUMAB [Suspect]
     Active Substance: VEDOLIZUMAB
     Indication: PRODUCT USED FOR UNKNOWN INDICATION
     Dosage: UNK UNK, Q2WEEKS
     Route: 065
     Dates: start: 20171207

REACTIONS (2)
  - Abortion spontaneous [Recovered/Resolved]
  - Pregnancy of partner [Recovered/Resolved]

NARRATIVE: CASE EVENT DATE: 201805
